FAERS Safety Report 5765073-2 (Version None)
Quarter: 2008Q2

REPORT INFORMATION
  Report Type: 
  Country: None (occurrence: None)
  Receive Date: 20080611
  Receipt Date: 20080530
  Transmission Date: 20081010
  Serious: Yes (Hospitalization, Other)
  Sender: FDA-Public Use
  Company Number: US-ELI_LILLY_AND_COMPANY-US200805006306

PATIENT
  Sex: Female

DRUGS (5)
  1. BYETTA [Suspect]
     Indication: TYPE 2 DIABETES MELLITUS
     Dosage: 5 UG, 2/D
     Route: 058
     Dates: start: 20080301, end: 20080301
  2. BYETTA [Suspect]
     Dosage: 5 UG, 2/D
     Route: 058
     Dates: start: 20080501, end: 20080501
  3. BYETTA [Suspect]
     Dosage: 10 UG, 2/D
     Route: 058
     Dates: start: 20080516
  4. BYETTA [Suspect]
     Dosage: 10 UG, 2/D
     Dates: start: 20080501
  5. AMARYL [Concomitant]
     Indication: TYPE 2 DIABETES MELLITUS

REACTIONS (10)
  - BLOOD GLUCOSE DECREASED [None]
  - CHILLS [None]
  - DECREASED APPETITE [None]
  - HUNGER [None]
  - MALAISE [None]
  - NAUSEA [None]
  - OXYGEN SATURATION DECREASED [None]
  - PNEUMONIA [None]
  - PYREXIA [None]
  - RESPIRATORY RATE DECREASED [None]
